FAERS Safety Report 13896958 (Version 1)
Quarter: 2017Q3

REPORT INFORMATION
  Report Type: Spontaneous
  Country: US (occurrence: None)
  Receive Date: 20170822
  Receipt Date: 20170822
  Transmission Date: 20171127
  Serious: Yes (Life-Threatening, Other)
  Sender: FDA-Public Use
  Company Number: None

PATIENT
  Age: 70 Year
  Sex: Male
  Weight: 95.25 kg

DRUGS (10)
  1. FISH OIL [Concomitant]
     Active Substance: FISH OIL
  2. PRAVASTATIN. [Concomitant]
     Active Substance: PRAVASTATIN
  3. FISH OIL [Concomitant]
     Active Substance: FISH OIL
  4. LISINOPRIL. [Concomitant]
     Active Substance: LISINOPRIL
  5. MULTI VITAMIN [Concomitant]
     Active Substance: VITAMINS
  6. POTASSIUM CITRATE 5 MEQ SA TAB [Suspect]
     Active Substance: POTASSIUM CITRATE
     Indication: BLOOD SODIUM INCREASED
     Dosage: QUANTITY:1 PILL, 3 TIMES DAILY, MOUTH WITH WATER?
     Route: 048
     Dates: start: 20161122, end: 20170807
  7. POTASSIUM CITRATE 5 MEQ SA TAB [Suspect]
     Active Substance: POTASSIUM CITRATE
     Indication: BLOOD CALCIUM INCREASED
     Dosage: QUANTITY:1 PILL, 3 TIMES DAILY, MOUTH WITH WATER?
     Route: 048
     Dates: start: 20161122, end: 20170807
  8. ASPIRIN. [Concomitant]
     Active Substance: ASPIRIN
  9. POTASSIUM CITRATE 5 MEQ SA TAB [Suspect]
     Active Substance: POTASSIUM CITRATE
     Indication: RENAL LITHIASIS PROPHYLAXIS
     Dosage: QUANTITY:1 PILL, 3 TIMES DAILY, MOUTH WITH WATER?
     Route: 048
     Dates: start: 20161122, end: 20170807
  10. HYDROCHLOROTHIAZIDE. [Concomitant]
     Active Substance: HYDROCHLOROTHIAZIDE

REACTIONS (3)
  - Product physical issue [None]
  - Cough [None]
  - Foreign body in respiratory tract [None]

NARRATIVE: CASE EVENT DATE: 20170807
